FAERS Safety Report 20624940 (Version 1)
Quarter: 2022Q1

REPORT INFORMATION
  Report Type: Report from Study
  Country: US (occurrence: US)
  Receive Date: 20220323
  Receipt Date: 20220323
  Transmission Date: 20220424
  Serious: No
  Sender: FDA-Public Use
  Company Number: US-BIOVITRUM-2022US04154

PATIENT
  Sex: Female

DRUGS (5)
  1. SYNAGIS [Suspect]
     Active Substance: PALIVIZUMAB
     Indication: Antiviral prophylaxis
     Dosage: 100MG/1ML
     Route: 030
  2. FUROSEMIDE [Concomitant]
     Active Substance: FUROSEMIDE
  3. FAMOTIDINE [Concomitant]
     Active Substance: FAMOTIDINE
  4. DIGOXIN PEDIATRIC [Concomitant]
  5. ENALAPRILAT [Concomitant]
     Active Substance: ENALAPRILAT

REACTIONS (1)
  - Injection site pain [Unknown]
